FAERS Safety Report 25599994 (Version 1)
Quarter: 2025Q3

REPORT INFORMATION
  Report Type: Spontaneous
  Country: CA (occurrence: CA)
  Receive Date: 20250724
  Receipt Date: 20250724
  Transmission Date: 20251021
  Serious: No
  Sender: ALKEM
  Company Number: CA-ALKEM LABORATORIES LIMITED-CA-ALKEM-2024-13717

PATIENT
  Age: 42 Year
  Sex: Female

DRUGS (6)
  1. ITRACONAZOLE [Suspect]
     Active Substance: ITRACONAZOLE
     Indication: Onychomycosis
     Dosage: 200 MILLIGRAM, BID (PULSE THERAPY)
     Route: 065
  2. ITRACONAZOLE [Suspect]
     Active Substance: ITRACONAZOLE
     Dosage: 200 MILLIGRAM, BID (THEN 1 WEEK ON)
     Route: 065
  3. FLUCONAZOLE [Suspect]
     Active Substance: FLUCONAZOLE
     Indication: Onychomycosis
     Dosage: 150 MILLIGRAM, QD
     Route: 065
  4. TERBINAFINE [Suspect]
     Active Substance: TERBINAFINE
     Indication: Onychomycosis
     Dosage: 250 MILLIGRAM, QD
     Route: 065
  5. VORICONAZOLE [Suspect]
     Active Substance: VORICONAZOLE
     Indication: Onychomycosis
     Dosage: 200 MILLIGRAM, BID (ON FIRST DAY)
     Route: 065
  6. VORICONAZOLE [Suspect]
     Active Substance: VORICONAZOLE
     Route: 065

REACTIONS (1)
  - Treatment failure [Unknown]
